FAERS Safety Report 20950830 (Version 2)
Quarter: 2022Q3

REPORT INFORMATION
  Report Type: Other
  Country: US (occurrence: None)
  Receive Date: 20220613
  Receipt Date: 20220722
  Transmission Date: 20221027
  Serious: Yes (Death)
  Sender: FDA-Public Use
  Company Number: US-ROCHE-3116767

PATIENT

DRUGS (3)
  1. IBRUTINIB [Suspect]
     Active Substance: IBRUTINIB
     Indication: Mantle cell lymphoma
     Route: 048
  2. RITUXIMAB [Suspect]
     Active Substance: RITUXIMAB
     Indication: Mantle cell lymphoma
     Dosage: (ON DAY 1 OF EACH CYCLE), WHICH?WERE ADMINISTERED EVERY 4 WEEKS FOR SIX CYCLES.
     Route: 042
  3. BENDAMUSTINE [Suspect]
     Active Substance: BENDAMUSTINE
     Indication: Mantle cell lymphoma
     Dosage: 90 MG PER?SQUARE METER OF BODY-SURFACE AREA (ON DAYS 1?AND 2 OF EACH CYCLE, WHICH WAS DEFINED AS 28
     Route: 042

REACTIONS (1)
  - COVID-19 [Fatal]
